FAERS Safety Report 14540190 (Version 2)
Quarter: 2018Q4

REPORT INFORMATION
  Report Type: Spontaneous
  Country: DK (occurrence: DK)
  Receive Date: 20180216
  Receipt Date: 20181207
  Transmission Date: 20190204
  Serious: Yes (Hospitalization, Other)
  Sender: FDA-Public Use
  Company Number: DK-PFIZER INC-2018060453

PATIENT
  Age: 51 Year
  Sex: Female

DRUGS (4)
  1. DEXAMETHASONE. [Concomitant]
     Active Substance: DEXAMETHASONE
     Indication: ADVERSE REACTION
     Dosage: 20 MG, 1X/DAY
     Route: 048
     Dates: start: 20150320
  2. ZOLEDRONIC ACID HOSPIRA [Suspect]
     Active Substance: ZOLEDRONIC ACID
     Indication: METASTASES TO BONE
     Dosage: 4 MG AT EVERY DOSE
     Route: 042
     Dates: start: 20151120, end: 20171107
  3. REVLIMID [Concomitant]
     Active Substance: LENALIDOMIDE
     Indication: PLASMA CELL MYELOMA
     Dosage: 25 MG, 1X/DAY
     Route: 048
     Dates: start: 20170522
  4. DARZALEX [Concomitant]
     Active Substance: DARATUMUMAB
     Indication: PLASMA CELL MYELOMA
     Dosage: 1360 MG AT EVERY DOSE
     Route: 042
     Dates: start: 201703

REACTIONS (5)
  - Oral pain [Not Recovered/Not Resolved]
  - Osteonecrosis of jaw [Not Recovered/Not Resolved]
  - Erythema [Not Recovered/Not Resolved]
  - Exposed bone in jaw [Not Recovered/Not Resolved]
  - Purulence [Not Recovered/Not Resolved]

NARRATIVE: CASE EVENT DATE: 201708
